FAERS Safety Report 5497653-6 (Version None)
Quarter: 2007Q4

REPORT INFORMATION
  Report Type: 
  Country: None (occurrence: None)
  Receive Date: 20071023
  Receipt Date: 20071008
  Transmission Date: 20080405
  Serious: Yes (Hospitalization)
  Sender: FDA-Public Use
  Company Number: S07-UKI-05524-01

PATIENT
  Sex: Female

DRUGS (1)
  1. CITALOPRAM HYDROBROMIDE [Suspect]

REACTIONS (4)
  - CARDIAC DISORDER [None]
  - ELECTROCARDIOGRAM T WAVE BIPHASIC [None]
  - ELECTROCARDIOGRAM T WAVE INVERSION [None]
  - OVERDOSE [None]
